FAERS Safety Report 20258956 (Version 1)
Quarter: 2021Q4

REPORT INFORMATION
  Report Type: Spontaneous
  Country: US (occurrence: None)
  Receive Date: 20211230
  Receipt Date: 20211230
  Transmission Date: 20220303
  Serious: No
  Sender: FDA-Public Use
  Company Number: None

PATIENT
  Age: 44 Year
  Sex: Female
  Weight: 97.5 kg

DRUGS (6)
  1. BAMLANIVIMAB [Suspect]
     Active Substance: BAMLANIVIMAB
     Indication: COVID-19
     Dosage: FREQUENCY: ONCE?
     Route: 041
     Dates: start: 20211228, end: 20211228
  2. ETESEVIMAB [Suspect]
     Active Substance: ETESEVIMAB
     Indication: COVID-19
     Dosage: FREQUENCY: ONCE?
     Route: 041
     Dates: start: 20211228, end: 20211228
  3. ALBUTEROL [Concomitant]
     Active Substance: ALBUTEROL
  4. FLUOXETINE [Concomitant]
     Active Substance: FLUOXETINE HYDROCHLORIDE
  5. PREDNISONE [Concomitant]
     Active Substance: PREDNISONE
  6. SUMATRIPTAN [Concomitant]
     Active Substance: SUMATRIPTAN

REACTIONS (4)
  - Chest discomfort [None]
  - Dyspnoea [None]
  - Flushing [None]
  - Erythema [None]

NARRATIVE: CASE EVENT DATE: 20211228
